FAERS Safety Report 16394234 (Version 1)
Quarter: 2019Q2

REPORT INFORMATION
  Report Type: Spontaneous
  Country: US (occurrence: US)
  Receive Date: 20190605
  Receipt Date: 20190605
  Transmission Date: 20190711
  Serious: No
  Sender: FDA-Public Use
  Company Number: US-BAYER-2019-108895

PATIENT
  Age: 78 Year
  Sex: Male
  Weight: 113 kg

DRUGS (1)
  1. MIRALAX [Suspect]
     Active Substance: POLYETHYLENE GLYCOL 3350
     Indication: GASTROINTESTINAL DISORDER
     Dosage: 1 DF 1 CAP IN 4-8 OZ OF WATER
     Route: 048

REACTIONS (1)
  - Pruritus [Unknown]
